FAERS Safety Report 4572236-0 (Version None)
Quarter: 2005Q1

REPORT INFORMATION
  Report Type: 
  Country: None (occurrence: None)
  Receive Date: 20050203
  Receipt Date: 20050124
  Transmission Date: 20050727
  Serious: Yes (Death)
  Sender: FDA-Public Use
  Company Number: BRO-008310

PATIENT
  Age: 63 Year
  Sex: Male

DRUGS (2)
  1. IOPAMIDOL / IOPAMIRON 300 [Suspect]
     Indication: ALCOHOLIC LIVER DISEASE
     Dosage: 100 ML, IV
     Route: 042
     Dates: start: 20041227, end: 20041227
  2. IOPAMIDOL / IOPAMIRON 300 [Suspect]
     Indication: COMPUTERISED TOMOGRAM
     Dosage: 100 ML, IV
     Route: 042
     Dates: start: 20041227, end: 20041227

REACTIONS (3)
  - CARDIAC ARREST [None]
  - LOSS OF CONSCIOUSNESS [None]
  - VENTRICULAR FIBRILLATION [None]
